FAERS Safety Report 5178816-6 (Version None)
Quarter: 2006Q4

REPORT INFORMATION
  Report Type: 
  Country: None (occurrence: None)
  Receive Date: 20061208
  Receipt Date: 20061129
  Transmission Date: 20070319
  Serious: Yes (Hospitalization)
  Sender: FDA-Public Use
  Company Number: 2006136595

PATIENT
  Age: 15 Year
  Sex: Female
  Weight: 88.7236 kg

DRUGS (2)
  1. ZIPRASIDONE HCL [Suspect]
     Indication: SCHIZOPHRENIA
     Dosage: 120 MG (60  MG, 2 IN 1 D)
     Dates: start: 20030221, end: 20030519
  2. SERTRALINE [Concomitant]

REACTIONS (7)
  - ABNORMAL BEHAVIOUR [None]
  - BLOOD THYROID STIMULATING HORMONE INCREASED [None]
  - GRANDIOSITY [None]
  - HALLUCINATION [None]
  - MANIA [None]
  - PRESSURE OF SPEECH [None]
  - TREATMENT NONCOMPLIANCE [None]
